FAERS Safety Report 7786460-7 (Version None)
Quarter: 2011Q3

REPORT INFORMATION
  Report Type: 
  Country: None (occurrence: None)
  Receive Date: 20110928
  Receipt Date: 20110928
  Transmission Date: 20111222
  Serious: Yes (Hospitalization)
  Sender: FDA-Public Use
  Company Number: None

PATIENT
  Sex: Female

DRUGS (1)
  1. ENBREL [Suspect]
     Dosage: 50 QW SQ
     Route: 058
     Dates: start: 20110825, end: 20110901

REACTIONS (2)
  - HERPES ZOSTER [None]
  - RENAL FAILURE [None]
